FAERS Safety Report 11242438 (Version 1)
Quarter: 2015Q3

REPORT INFORMATION
  Report Type: Spontaneous
  Country: GB (occurrence: GB)
  Receive Date: 20150707
  Receipt Date: 20150707
  Transmission Date: 20151125
  Serious: Yes (Hospitalization, Other)
  Sender: FDA-Public Use
  Company Number: GB-ROCHE-1601103

PATIENT
  Age: 87 Year
  Sex: Female
  Weight: 51 kg

DRUGS (13)
  1. IBUPROFEN. [Concomitant]
     Active Substance: IBUPROFEN
     Dosage: TAKE ONE OR TWO
     Route: 065
     Dates: start: 20150310, end: 20150427
  2. CACIT D3 [Concomitant]
     Active Substance: CALCIUM\CHOLECALCIFEROL
     Dosage: NOT ON DAY OF ALENDRONATE?REPORTED AS CACIT VITAMIN D3.
     Route: 065
     Dates: start: 20141110
  3. FLAMAZINE [Concomitant]
     Active Substance: SILVER SULFADIAZINE
     Dosage: USE AS DIRECTED
     Route: 065
     Dates: start: 20131213
  4. PARACETAMOL [Concomitant]
     Active Substance: ACETAMINOPHEN
     Dosage: TAKE 1 OR 2
     Route: 065
     Dates: start: 20131029
  5. NAPROXEN. [Suspect]
     Active Substance: NAPROXEN
     Indication: PRODUCT USED FOR UNKNOWN INDICATION
     Route: 048
     Dates: start: 20150427
  6. ANASTROZOLE. [Concomitant]
     Active Substance: ANASTROZOLE
     Route: 065
     Dates: start: 20140115
  7. BETAMETHASONE VALERATE. [Concomitant]
     Active Substance: BETAMETHASONE VALERATE
     Dosage: USE AS DIRECTED.
     Route: 065
     Dates: start: 20140702
  8. CODEINE PHOSPHATE [Concomitant]
     Active Substance: CODEINE PHOSPHATE
     Dosage: TAKE ONE OR TWO FOUR TIMES A DAY AS NEEDED
     Route: 065
     Dates: start: 20140827
  9. AMOXICILLIN. [Concomitant]
     Active Substance: AMOXICILLIN
     Route: 065
     Dates: start: 20150511, end: 20150518
  10. RANITIDINE [Concomitant]
     Active Substance: RANITIDINE\RANITIDINE HYDROCHLORIDE
     Route: 065
     Dates: start: 20150528
  11. ALENDRONIC ACID [Concomitant]
     Active Substance: ALENDRONIC ACID
     Dosage: ON EMPTY STOMACH WITH GLASS WATER.
     Route: 065
     Dates: start: 20150202
  12. ISPAGHULA EXTRACT\PSYLLIUM [Concomitant]
     Active Substance: PLANTAGO OVATA SEED\PLANTAGO SEED
     Dosage: USE AS DIRECTED
     Route: 065
     Dates: start: 20150105
  13. OMEPRAZOLE. [Concomitant]
     Active Substance: OMEPRAZOLE
     Dosage: ACID REDUCER, WHILE ON IBUPROFEN,
     Route: 065
     Dates: start: 20150310, end: 20150528

REACTIONS (5)
  - Local swelling [Recovered/Resolved]
  - Erythema [Recovered/Resolved]
  - Rash pruritic [Recovered/Resolved]
  - Hypersensitivity [Recovered/Resolved]
  - Pharyngeal oedema [Recovered/Resolved]

NARRATIVE: CASE EVENT DATE: 20150531
